FAERS Safety Report 4783799-4 (Version None)
Quarter: 2005Q3

REPORT INFORMATION
  Report Type: 
  Country: None (occurrence: None)
  Receive Date: 20050927
  Receipt Date: 20050613
  Transmission Date: 20060218
  Serious: No
  Sender: FDA-Public Use
  Company Number: USA0506100232

PATIENT
  Sex: Male

DRUGS (3)
  1. STRATTERA [Suspect]
     Indication: ATTENTION DEFICIT/HYPERACTIVITY DISORDER
     Dosage: 60 MG DAY
  2. ABILIFY [Concomitant]
  3. ZOLOFT [Concomitant]

REACTIONS (3)
  - FATIGUE [None]
  - HYPERHIDROSIS [None]
  - TEMPERATURE INTOLERANCE [None]
